FAERS Safety Report 6162959-4 (Version None)
Quarter: 2009Q2

REPORT INFORMATION
  Report Type: 
  Country: None (occurrence: None)
  Receive Date: 20090420
  Receipt Date: 20090413
  Transmission Date: 20091009
  Serious: Yes (Other)
  Sender: FDA-Public Use
  Company Number: 246189

PATIENT
  Age: 46 Year
  Sex: Female

DRUGS (8)
  1. KETAMINE HCL [Suspect]
     Indication: STATUS ASTHMATICUS
     Dosage: INTRAVENOUS
     Route: 042
  2. EPINEPHRINE [Suspect]
     Indication: STATUS ASTHMATICUS
     Dosage: INTRAVENOUS
     Route: 042
  3. METHYLPREDNISOLONE 4MG TAB [Concomitant]
  4. IPRATROPIUM BROMIDE [Concomitant]
  5. ALBUTEROL [Concomitant]
  6. PROPOFOL [Concomitant]
  7. MIDAZOLAM HCL [Concomitant]
  8. CUSATRACURIUM [Concomitant]

REACTIONS (2)
  - ELECTROCARDIOGRAM ST SEGMENT ELEVATION [None]
  - STRESS CARDIOMYOPATHY [None]
